FAERS Safety Report 6954936-8 (Version None)
Quarter: 2010Q3

REPORT INFORMATION
  Report Type: 
  Country: None (occurrence: None)
  Receive Date: 20100830
  Receipt Date: 20100823
  Transmission Date: 20110219
  Serious: Yes (Death, Other)
  Sender: FDA-Public Use
  Company Number: PHMT2007CA01919

PATIENT
  Sex: Female

DRUGS (10)
  1. CLOZARIL [Suspect]
     Indication: SCHIZOPHRENIA
     Dosage: 250 MG, QHS
     Route: 048
     Dates: start: 19920818, end: 20100823
  2. GRAVOL TAB [Concomitant]
     Dosage: PRN
  3. KADIAN [Concomitant]
     Dosage: 10 MG, QHS
  4. PANTOPRAZOLE [Concomitant]
  5. PROVERA [Concomitant]
  6. SYNTHROID [Concomitant]
  7. FRAGMIN [Concomitant]
  8. COLACE [Concomitant]
  9. SENOKOT [Concomitant]
  10. COLYTE [Concomitant]

REACTIONS (13)
  - AGRANULOCYTOSIS [None]
  - ANAEMIA [None]
  - BACK PAIN [None]
  - CHEMOTHERAPY [None]
  - DEATH [None]
  - DEEP VEIN THROMBOSIS [None]
  - ENDOMETRIAL CANCER [None]
  - METASTASES TO LUNG [None]
  - NEUTROPENIA [None]
  - NEUTROPHIL COUNT DECREASED [None]
  - PULMONARY EMBOLISM [None]
  - SURGERY [None]
  - WHITE BLOOD CELL COUNT DECREASED [None]
